FAERS Safety Report 9851827 (Version 2)
Quarter: 2014Q1

REPORT INFORMATION
  Report Type: Spontaneous
  Country: US (occurrence: None)
  Receive Date: 20140127
  Receipt Date: 20140304
  Transmission Date: 20141002
  Serious: Yes (Other)
  Sender: FDA-Public Use
  Company Number: 2014P1000414

PATIENT
  Age: 14 Year
  Sex: Male
  Weight: 83.51 kg

DRUGS (2)
  1. MYORISAN 40 MG [Suspect]
     Indication: ACNE CYSTIC
     Route: 048
     Dates: start: 20131001, end: 20131013
  2. MYORISAN 40 MG [Suspect]
     Indication: SCAR
     Route: 048
     Dates: start: 20131001, end: 20131013

REACTIONS (3)
  - Headache [None]
  - Concussion [None]
  - Dry skin [None]
